FAERS Safety Report 6611293-4 (Version None)
Quarter: 2010Q1

REPORT INFORMATION
  Report Type: 
  Country: None (occurrence: None)
  Receive Date: 20100302
  Receipt Date: 20100302
  Transmission Date: 20100710
  Serious: Yes (Hospitalization)
  Sender: FDA-Public Use
  Company Number: None

PATIENT
  Age: 88 Year
  Sex: Male
  Weight: 72 kg

DRUGS (5)
  1. ASPIRIN [Suspect]
     Dosage: 325 MG DAILY PO CHRONIC
     Route: 048
  2. MOBIC [Suspect]
     Dosage: 15 MG DAILY PO CHRONIC
     Route: 048
  3. VICODIN [Concomitant]
  4. IRON SUPPLEMENT [Concomitant]
  5. OXYCONTIN [Concomitant]

REACTIONS (4)
  - DEVICE DISLOCATION [None]
  - FALL [None]
  - GASTROINTESTINAL ULCER [None]
  - UPPER GASTROINTESTINAL HAEMORRHAGE [None]
